FAERS Safety Report 8853008 (Version 2)
Quarter: 2012Q4

REPORT INFORMATION
  Report Type: 
  Country: FR (occurrence: FR)
  Receive Date: 20121022
  Receipt Date: 20121031
  Transmission Date: 20130627
  Serious: Yes (Hospitalization)
  Sender: FDA-Public Use
  Company Number: FR-B.I. PHARMACEUTICALS,INC./RIDGEFIELD-2012-FF-01494FF

PATIENT
  Sex: Female
  Weight: 84 kg

DRUGS (15)
  1. SIFROL [Suspect]
     Indication: RESTLESS LEGS SYNDROME
     Dosage: 1.05 mg
     Route: 048
     Dates: start: 200801
  2. SIFROL [Suspect]
     Dosage: 1.23 mg
     Route: 048
     Dates: start: 200911
  3. SIFROL [Suspect]
     Dosage: 1.4 mg
     Route: 048
     Dates: start: 200007
  4. SIFROL [Suspect]
     Dosage: 1.41 mg
     Route: 048
     Dates: start: 201010
  5. MODOPAR [Concomitant]
     Indication: RESTLESS LEGS SYNDROME
     Dosage: 100 mg + 25 mg
  6. LYSANXIA [Concomitant]
     Indication: RESTLESS LEGS SYNDROME
     Dosage: 10 mg
     Route: 048
  7. DI-ANTALVIC [Concomitant]
     Indication: RESTLESS LEGS SYNDROME
     Route: 048
  8. LEVOTHYROX [Concomitant]
     Indication: HYPOTHYROIDISM
     Dosage: one tablet every other day
     Route: 048
     Dates: start: 199208
  9. TAREG [Concomitant]
     Indication: HYPERTENSION
     Route: 048
     Dates: start: 200307
  10. SPIROLACTONE ALTIZIDE [Concomitant]
     Indication: HYPERTENSION
     Dosage: 25 mg/ 15 mg  1/2 tablet daily
     Route: 048
     Dates: start: 200401
  11. KARDEGIC [Concomitant]
     Dosage: 75 mg
     Route: 048
     Dates: start: 200307
  12. SIMVASTATINE [Concomitant]
     Indication: BLOOD CHOLESTEROL
     Dosage: 20 mg
     Route: 048
     Dates: start: 200607
  13. SPAGULAX [Concomitant]
     Indication: CONSTIPATION
     Route: 048
  14. LACTULOSE [Concomitant]
     Indication: CONSTIPATION
     Route: 048
     Dates: start: 200404
  15. TIMOPTOL LP [Concomitant]
     Indication: OCULAR HYPERTENSION
     Dosage: 0.50 %
     Route: 048

REACTIONS (3)
  - Diplopia [Unknown]
  - Visual acuity reduced [Unknown]
  - Overdose [Unknown]
